FAERS Safety Report 18799595 (Version 1)
Quarter: 2021Q1

REPORT INFORMATION
  Report Type: Spontaneous
  Country: IN (occurrence: IN)
  Receive Date: 20210128
  Receipt Date: 20210128
  Transmission Date: 20210419
  Serious: Yes (Hospitalization)
  Sender: FDA-Public Use
  Company Number: IN-MYLANLABS-2021M1004882

PATIENT
  Age: 25 Year
  Sex: Female

DRUGS (1)
  1. BUPIVACAINE. [Suspect]
     Active Substance: BUPIVACAINE
     Indication: SPINAL ANAESTHESIA
     Dosage: 2.5 MILLILITER INTERVERTEBRAL SPACE

REACTIONS (2)
  - Maternal exposure during delivery [Recovered/Resolved]
  - Subarachnoid haemorrhage [Recovering/Resolving]
